FAERS Safety Report 20588710 (Version 1)
Quarter: 2022Q1

REPORT INFORMATION
  Report Type: Spontaneous
  Country: AT (occurrence: AT)
  Receive Date: 20220314
  Receipt Date: 20220314
  Transmission Date: 20220424
  Serious: Yes (Other)
  Sender: FDA-Public Use
  Company Number: AT-009507513-2203AUT002265

PATIENT
  Age: 80 Year
  Sex: Female

DRUGS (1)
  1. JANUMET [Suspect]
     Active Substance: METFORMIN HYDROCHLORIDE\SITAGLIPTIN PHOSPHATE
     Indication: Diabetes mellitus
     Dosage: 1 DOSAGE FORM, ONE TABLET IN THE MORNING, ONE TABLET IN THE EVENING
     Route: 048

REACTIONS (4)
  - Intestinal ulcer [Unknown]
  - Intestinal ulcer [Unknown]
  - Intestinal ulcer [Unknown]
  - Diarrhoea [Unknown]
